FAERS Safety Report 25278859 (Version 1)
Quarter: 2025Q2

REPORT INFORMATION
  Report Type: Spontaneous
  Country: US (occurrence: None)
  Receive Date: 20250507
  Receipt Date: 20250507
  Transmission Date: 20250716
  Serious: Yes (Life-Threatening)
  Sender: FDA-CTU
  Company Number: None

PATIENT
  Age: 9 Week
  Sex: Male
  Weight: 4.92 kg

DRUGS (1)
  1. BIVALIRUDIN [Suspect]
     Active Substance: BIVALIRUDIN

REACTIONS (2)
  - Complication associated with device [None]
  - Thrombosis [None]

NARRATIVE: CASE EVENT DATE: 20250430
